FAERS Safety Report 8273448-5 (Version None)
Quarter: 2012Q2

REPORT INFORMATION
  Report Type: 
  Country: None (occurrence: None)
  Receive Date: 20120411
  Receipt Date: 20120402
  Transmission Date: 20120825
  Serious: Yes (Other)
  Sender: FDA-Public Use
  Company Number: US-NOVOPROD-348878

PATIENT
  Age: 36 Year
  Sex: Female

DRUGS (2)
  1. VICTOZA [Suspect]
     Indication: TYPE 2 DIABETES MELLITUS
     Dosage: UNKNOWN
     Route: 058
  2. VICTOZA [Suspect]
     Dosage: 1.8 MG, QD
     Route: 058

REACTIONS (2)
  - NAUSEA [None]
  - CHOLELITHIASIS [None]
